FAERS Safety Report 10053427 (Version 2)
Quarter: 2014Q2

REPORT INFORMATION
  Report Type: Spontaneous
  Country: RU (occurrence: RU)
  Receive Date: 20140402
  Receipt Date: 20140404
  Transmission Date: 20141212
  Serious: Yes (Hospitalization, Other)
  Sender: FDA-Public Use
  Company Number: RU-009507513-1403RUS012517

PATIENT
  Age: 60 Year
  Sex: Male

DRUGS (2)
  1. DIPROSPAN [Suspect]
     Indication: NEUROMUSCULAR BLOCKADE
     Dosage: DILUTED 1:10 AND INJECTED DURING 5 MINUTES
     Route: 031
  2. LIDOCAINE [Suspect]
     Route: 014

REACTIONS (9)
  - Tongue paralysis [Unknown]
  - Dysarthria [Unknown]
  - Visual impairment [Unknown]
  - Loss of consciousness [Unknown]
  - Dyskinesia [Unknown]
  - Disorientation [Unknown]
  - Blood pressure increased [Unknown]
  - Feeling drunk [Unknown]
  - Urinary incontinence [Unknown]
